FAERS Safety Report 5863709-9 (Version None)
Quarter: 2008Q3

REPORT INFORMATION
  Report Type: 
  Country: None (occurrence: None)
  Receive Date: 20080828
  Receipt Date: 20080821
  Transmission Date: 20090109
  Serious: Yes (Other)
  Sender: FDA-Public Use
  Company Number: GB-PFIZER INC-2008070183

PATIENT
  Age: 27 Year
  Sex: Male
  Weight: 87 kg

DRUGS (4)
  1. CHANTIX [Suspect]
     Indication: SMOKING CESSATION THERAPY
     Route: 048
     Dates: start: 20080711, end: 20080806
  2. ALCOHOL [Interacting]
  3. IBUPROFEN [Concomitant]
     Indication: BACK PAIN
     Route: 048
  4. PARAMOL [Concomitant]
     Route: 048

REACTIONS (3)
  - AMNESIA [None]
  - DRUG INTERACTION [None]
  - MANIA [None]
